FAERS Safety Report 9693385 (Version 1)
Quarter: 2013Q4

REPORT INFORMATION
  Report Type: Spontaneous
  Country: GB (occurrence: GB)
  Receive Date: 20131118
  Receipt Date: 20131118
  Transmission Date: 20140711
  Serious: Yes (Death)
  Sender: FDA-Public Use
  Company Number: GB-B.I. PHARMACEUTICALS,INC./RIDGEFIELD-2013-BI-37875UK

PATIENT
  Age: 7 Decade
  Sex: Male

DRUGS (2)
  1. SPIRIVA RESPIMAT [Suspect]
  2. OTHER MEDICATIONS - NOT SPECIFIED [Concomitant]

REACTIONS (1)
  - Myocardial infarction [Fatal]
